FAERS Safety Report 8178744-8 (Version None)
Quarter: 2012Q1

REPORT INFORMATION
  Report Type: 
  Country: None (occurrence: None)
  Receive Date: 20120301
  Receipt Date: 20120301
  Transmission Date: 20120608
  Serious: Yes (Life-Threatening, Hospitalization)
  Sender: FDA-Public Use
  Company Number: None

PATIENT
  Sex: Female
  Weight: 54.431 kg

DRUGS (1)
  1. SCOPOLAMINE [Suspect]
     Indication: PROPHYLAXIS AGAINST MOTION SICKNESS
     Dosage: ONE PATCH
     Route: 062
     Dates: start: 20101223, end: 20101227

REACTIONS (6)
  - LOGORRHOEA [None]
  - HALLUCINATION [None]
  - WRONG TECHNIQUE IN DRUG USAGE PROCESS [None]
  - AMNESIA [None]
  - MENTAL STATUS CHANGES [None]
  - ABNORMAL BEHAVIOUR [None]
